APPROVED DRUG PRODUCT: FEMPATCH
Active Ingredient: ESTRADIOL
Strength: 0.025MG/24HR
Dosage Form/Route: FILM, EXTENDED RELEASE;TRANSDERMAL
Application: N020417 | Product #001
Applicant: PARKE DAVIS PHARMACEUTICAL RESEARCH DIV WARNER LAMBERT CO
Approved: Dec 3, 1996 | RLD: No | RS: No | Type: DISCN